FAERS Safety Report 7959172-4 (Version None)
Quarter: 2011Q4

REPORT INFORMATION
  Report Type: 
  Country: None (occurrence: None)
  Receive Date: 20111206
  Receipt Date: 20110408
  Transmission Date: 20120403
  Serious: No
  Sender: FDA-Public Use
  Company Number: US-ABBOTT-11P-163-0695124-00

PATIENT
  Sex: Female
  Weight: 56.75 kg

DRUGS (1)
  1. OMNICEF [Suspect]
     Indication: STAPHYLOCOCCAL INFECTION
     Route: 048
     Dates: start: 20101102, end: 20101105

REACTIONS (1)
  - RASH [None]
